FAERS Safety Report 7357410-2 (Version None)
Quarter: 2011Q1

REPORT INFORMATION
  Report Type: 
  Country: None (occurrence: None)
  Receive Date: 20110317
  Receipt Date: 20110311
  Transmission Date: 20110831
  Serious: Yes (Other)
  Sender: FDA-Public Use
  Company Number: JP-PFIZER INC-2011054867

PATIENT
  Age: 82 Year
  Sex: Male

DRUGS (9)
  1. ZYVOX [Suspect]
     Indication: BACTERIAL INFECTION
     Dosage: 1200 MG/DAY
     Route: 041
     Dates: start: 20110309
  2. ARTIST [Concomitant]
     Indication: HYPERTENSION
     Dosage: 1.25 MG/DAY
     Route: 041
     Dates: start: 20110301
  3. ELASPOL (SIVELESTAT SODIUM) [Concomitant]
     Indication: ACUTE LUNG INJURY
     Dosage: 250 MG/DAY
     Route: 041
     Dates: start: 20110301
  4. HEPARIN [Concomitant]
     Dosage: 5000 (UNIT UNKNOWN)
     Route: 041
     Dates: start: 20110301
  5. PRODIF [Concomitant]
     Indication: FUNGAL INFECTION
     Dosage: 200 MG/DAY
     Route: 041
     Dates: start: 20110301
  6. ANCARON [Concomitant]
     Indication: ARRHYTHMIA
     Dosage: 200 MG/DAY
     Route: 041
     Dates: start: 20110301
  7. FUTHAN [Concomitant]
     Indication: PROPHYLAXIS
     Dosage: 5 ML/DAY
     Route: 041
     Dates: start: 20110301
  8. METHYLPREDNISOLONE [Concomitant]
     Indication: INFLAMMATION
     Dosage: 125 MG/DAY
     Route: 041
     Dates: start: 20110301
  9. PAZUCROSS [Concomitant]
     Indication: BACTERIAL INFECTION
     Dosage: 500 MG/DAY
     Route: 041
     Dates: start: 20110301

REACTIONS (1)
  - WHITE BLOOD CELL COUNT INCREASED [None]
